FAERS Safety Report 19980054 (Version 1)
Quarter: 2021Q4

REPORT INFORMATION
  Report Type: Report from Study
  Country: US (occurrence: US)
  Receive Date: 20211021
  Receipt Date: 20211021
  Transmission Date: 20220303
  Serious: Yes (Other)
  Sender: FDA-Public Use
  Company Number: US-JNJFOC-20211021243

PATIENT
  Age: 38 Year
  Sex: Male

DRUGS (2)
  1. SPRAVATO [Suspect]
     Active Substance: ESKETAMINE
     Indication: Depression
     Dosage: 8 DOSES
     Dates: start: 20210325, end: 20210429
  2. SPRAVATO [Suspect]
     Active Substance: ESKETAMINE
     Dosage: 8 DOSES
     Dates: start: 20210504, end: 20210720

REACTIONS (1)
  - Transient ischaemic attack [Unknown]

NARRATIVE: CASE EVENT DATE: 20211011
